FAERS Safety Report 18179048 (Version 4)
Quarter: 2020Q4

REPORT INFORMATION
  Report Type: Spontaneous
  Country: JP (occurrence: JP)
  Receive Date: 20200821
  Receipt Date: 20201217
  Transmission Date: 20210113
  Serious: Yes (Hospitalization)
  Sender: FDA-Public Use
  Company Number: JP-BRISTOL-MYERS SQUIBB COMPANY-BMS-2020-067704

PATIENT
  Age: 71 Year
  Sex: Female
  Weight: 40 kg

DRUGS (8)
  1. YERVOY [Suspect]
     Active Substance: IPILIMUMAB
     Indication: MALIGNANT MELANOMA
     Dosage: 125 UNK
     Route: 041
     Dates: start: 20200430, end: 20200430
  2. YERVOY [Suspect]
     Active Substance: IPILIMUMAB
     Dosage: 125 UNK
     Route: 041
     Dates: start: 20200521, end: 20200521
  3. OPDIVO [Suspect]
     Active Substance: NIVOLUMAB
     Indication: MALIGNANT MELANOMA
     Dosage: 80 UNK
     Route: 041
     Dates: start: 20200430, end: 20200430
  4. OPDIVO [Suspect]
     Active Substance: NIVOLUMAB
     Dosage: 80 UNK
     Route: 041
     Dates: start: 20200702, end: 20200702
  5. YERVOY [Suspect]
     Active Substance: IPILIMUMAB
     Dosage: 125 UNK
     Route: 041
     Dates: start: 20200611, end: 20200611
  6. YERVOY [Suspect]
     Active Substance: IPILIMUMAB
     Dosage: 125 UNK
     Route: 041
     Dates: start: 20200702, end: 20200702
  7. OPDIVO [Suspect]
     Active Substance: NIVOLUMAB
     Dosage: 80 UNK
     Route: 041
     Dates: start: 20200521, end: 20200521
  8. OPDIVO [Suspect]
     Active Substance: NIVOLUMAB
     Dosage: 80 UNK
     Route: 041
     Dates: start: 20200611, end: 20200611

REACTIONS (1)
  - Hepatic function abnormal [Recovered/Resolved]

NARRATIVE: CASE EVENT DATE: 20200702
